FAERS Safety Report 14802676 (Version 2)
Quarter: 2018Q2

REPORT INFORMATION
  Report Type: Spontaneous
  Country: FR (occurrence: FR)
  Receive Date: 20180424
  Receipt Date: 20180514
  Transmission Date: 20180711
  Serious: Yes (Hospitalization, Other)
  Sender: FDA-Public Use
  Company Number: FR-PFIZER INC-2018165236

PATIENT
  Age: 61 Year
  Sex: Female
  Weight: 118 kg

DRUGS (15)
  1. VANCOMYCIN MYLAN [Suspect]
     Active Substance: VANCOMYCIN
     Indication: ANTIBIOTIC PROPHYLAXIS
     Dosage: 2 G, UNK (POUDRE POUR SOLUTION POUR PERFUSION (IV))
     Route: 042
     Dates: start: 20180315, end: 20180316
  2. OXYNORM [Suspect]
     Active Substance: OXYCODONE HYDROCHLORIDE
     Indication: POSTOPERATIVE ANALGESIA
     Dosage: UNK
     Route: 065
  3. CISATRACURIUM ACCORD [Suspect]
     Active Substance: CISATRACURIUM BESYLATE
     Indication: GENERAL ANAESTHESIA
     Dosage: 14 MG, UNK
     Route: 042
  4. NAROPEINE [Suspect]
     Active Substance: ROPIVACAINE HYDROCHLORIDE
     Indication: ANAESTHESIA
     Dosage: UNK
     Route: 042
  5. ATROPINE SULFATE. [Suspect]
     Active Substance: ATROPINE SULFATE
     Dosage: 0.5 MG, UNK (SOLUTION INJECTABLE)
     Route: 042
  6. PROFENID [Suspect]
     Active Substance: KETOPROFEN
     Indication: POSTOPERATIVE ANALGESIA
     Dosage: 100 MG, UNK (POUDRE POUR SOLUTION INJECTABLE (I.V.) EN FLACON)
     Route: 042
  7. MIDAZOLAM [Suspect]
     Active Substance: MIDAZOLAM HYDROCHLORIDE
     Indication: GENERAL ANAESTHESIA
     Dosage: 2 MG, UNK
     Route: 042
  8. PANTOPRAZOLE SODIUM. [Suspect]
     Active Substance: PANTOPRAZOLE SODIUM
     Dosage: 40 MG, UNK (COMPRIME GASTRORESISTANT)
     Route: 048
     Dates: start: 20180315, end: 20180319
  9. PROPOFOL FRESENIUS [Suspect]
     Active Substance: PROPOFOL
     Indication: GENERAL ANAESTHESIA
     Dosage: 350 MG, UNK (EMULSION INJECTABLE ET POUR PERFUSION)
     Route: 042
  10. SUFENTANIL [Suspect]
     Active Substance: SUFENTANIL
     Indication: GENERAL ANAESTHESIA
     Dosage: 235 G, UNK (SOLUTION INJECTABLE)
     Route: 042
  11. ATROPINE AGUETTANT [Suspect]
     Active Substance: ATROPINE
     Dosage: UNK
     Route: 065
  12. OXYCODONE AGUETTANT [Suspect]
     Active Substance: OXYCODONE HYDROCHLORIDE
     Indication: POSTOPERATIVE ANALGESIA
     Dosage: UNK (SOLUTION INJECTABLE)
     Route: 065
  13. ELIQUIS [Suspect]
     Active Substance: APIXABAN
     Indication: THROMBOSIS PROPHYLAXIS
     Dosage: 5 MG, DAILY
     Route: 048
     Dates: start: 20180316, end: 20180319
  14. EXACYL [Suspect]
     Active Substance: TRANEXAMIC ACID
     Indication: SURGERY
     Dosage: 1 G, UNK (0.5 G/5ML, SOLUTION INJECTABLE)
     Route: 042
  15. FER /00023511/ [Suspect]
     Active Substance: FERROUS CHLORIDE
     Dosage: 300 MG, UNK (FER PANPHARMA, SOLUTION A DILUER POUR PERFUSION)
     Route: 042

REACTIONS (2)
  - Toxic skin eruption [Recovered/Resolved]
  - Dermatitis exfoliative generalised [Recovered/Resolved]

NARRATIVE: CASE EVENT DATE: 20180316
